FAERS Safety Report 7764212-1 (Version None)
Quarter: 2011Q3

REPORT INFORMATION
  Report Type: 
  Country: None (occurrence: None)
  Receive Date: 20110921
  Receipt Date: 20110909
  Transmission Date: 20111222
  Serious: Yes (Other)
  Sender: FDA-Public Use
  Company Number: JP-JNJFOC-20110809368

PATIENT
  Sex: Female
  Weight: 54 kg

DRUGS (17)
  1. FENTANYL CITRATE [Suspect]
     Indication: PAIN
     Route: 062
     Dates: start: 20110114, end: 20110120
  2. PROCHLORPERAZINE [Concomitant]
     Route: 048
     Dates: start: 20110127, end: 20110131
  3. LEVOTHYROXINE SODIUM [Concomitant]
     Route: 048
  4. MAGNESIUM OXIDE [Concomitant]
     Indication: PROPHYLAXIS
     Route: 048
     Dates: start: 20110113, end: 20110120
  5. FENTANYL CITRATE [Suspect]
     Route: 062
     Dates: start: 20110217, end: 20110223
  6. GABAPENTIN [Concomitant]
     Indication: PAIN
     Route: 048
  7. JUZEN-TAIHO-TO [Concomitant]
     Indication: PAIN
     Route: 048
  8. OLMESARTAN MEDOXOMIL [Concomitant]
     Route: 048
  9. LAXOBERON [Concomitant]
     Indication: PROPHYLAXIS
     Route: 048
     Dates: start: 20110113, end: 20110120
  10. LACTOMIN [Concomitant]
     Route: 048
     Dates: start: 20110127, end: 20110203
  11. PRIMPERAN TAB [Concomitant]
     Indication: PROPHYLAXIS
     Route: 048
     Dates: start: 20110113, end: 20110120
  12. ACETAMINOPHEN [Concomitant]
     Indication: PAIN
     Route: 048
  13. PROMAC (POLAPREZINC) [Concomitant]
     Indication: PROPHYLAXIS
     Route: 048
  14. FENTANYL CITRATE [Suspect]
     Route: 062
     Dates: start: 20110127, end: 20110216
  15. FENTANYL CITRATE [Suspect]
     Route: 062
     Dates: start: 20110224, end: 20110404
  16. CLONAZEPAM [Concomitant]
     Indication: PAIN
     Route: 048
  17. AMLODIN OD [Concomitant]
     Route: 048

REACTIONS (1)
  - GASTROENTERITIS [None]
